FAERS Safety Report 7586449-7 (Version None)
Quarter: 2011Q3

REPORT INFORMATION
  Report Type: 
  Country: None (occurrence: None)
  Receive Date: 20110701
  Receipt Date: 20110624
  Transmission Date: 20111222
  Serious: Yes (Hospitalization, Other)
  Sender: FDA-Public Use
  Company Number: D0071790A

PATIENT
  Sex: Female
  Weight: 62 kg

DRUGS (7)
  1. VIREAD [Concomitant]
     Route: 065
     Dates: start: 20050906
  2. ACTIVATED CARBON [Concomitant]
     Route: 065
     Dates: start: 20110108
  3. CELSENTRI [Suspect]
     Indication: HIV INFECTION
     Dosage: 300MG TWICE PER DAY
     Route: 048
     Dates: start: 20100129
  4. ISENTRESS [Concomitant]
     Route: 048
     Dates: start: 20100114
  5. ACYCLOVIR [Concomitant]
     Route: 065
     Dates: start: 20100114
  6. ABACAVIR SULFATE AND LAMIVUDINE [Concomitant]
     Route: 048
     Dates: start: 20100129, end: 20100129
  7. RETROVIR [Concomitant]
     Route: 065
     Dates: start: 20050906, end: 20100114

REACTIONS (6)
  - SUICIDE ATTEMPT [None]
  - FLATULENCE [None]
  - DYSPNOEA [None]
  - MEMORY IMPAIRMENT [None]
  - FEELING ABNORMAL [None]
  - ANXIETY [None]
